FAERS Safety Report 7101286-5 (Version None)
Quarter: 2010Q4

REPORT INFORMATION
  Report Type: 
  Country: None (occurrence: None)
  Receive Date: 20101115
  Receipt Date: 20101102
  Transmission Date: 20110411
  Serious: Yes (Other)
  Sender: FDA-Public Use
  Company Number: DE-TEVA-209278ISR

PATIENT
  Sex: Female

DRUGS (2)
  1. COPAXONE [Suspect]
     Indication: MULTIPLE SCLEROSIS
     Route: 058
     Dates: start: 20040101
  2. HORMONAL CONTRACEPTIVES FOR SYSTEMIC USE [Concomitant]
     Indication: CONTRACEPTION

REACTIONS (3)
  - DENTAL CARIES [None]
  - TEETH BRITTLE [None]
  - TOOTH DISCOLOURATION [None]
